FAERS Safety Report 17507556 (Version 5)
Quarter: 2021Q2

REPORT INFORMATION
  Report Type: Spontaneous
  Country: FR (occurrence: FR)
  Receive Date: 20200306
  Receipt Date: 20210513
  Transmission Date: 20210716
  Serious: Yes (Other)
  Sender: FDA-Public Use
  Company Number: FR-AUROBINDO-AUR-APL-2020-010900

PATIENT
  Age: 61 Year
  Sex: Male
  Weight: 94 kg

DRUGS (4)
  1. SORAFENIB [Suspect]
     Active Substance: SORAFENIB
     Dosage: 400 MILLIGRAM, 0.5 DAY (ADMINISTERED ALONGSIDE THE GEMOX REGIMEN)
     Route: 065
     Dates: start: 2010, end: 2010
  2. SORAFENIB [Suspect]
     Active Substance: SORAFENIB
     Indication: HEPATOCELLULAR CARCINOMA
     Dosage: 800 MILLIGRAM, ONCE A DAY
     Route: 065
     Dates: end: 2010
  3. OXALIPLATIN. [Suspect]
     Active Substance: OXALIPLATIN
     Indication: HEPATOCELLULAR CARCINOMA
     Dosage: 100 MILLIGRAM/SQ. METER, CYCLICAL
     Route: 065
     Dates: start: 2010, end: 2010
  4. GEMCITABINE. [Suspect]
     Active Substance: GEMCITABINE
     Indication: HEPATOCELLULAR CARCINOMA
     Dosage: 1 GRAM PER SQUARE METRE, CYCLICAL (CYCLICAL THERAPY (GEMOX REGIMEN)
     Route: 065
     Dates: start: 2010

REACTIONS (6)
  - Thrombocytopenia [Recovered/Resolved]
  - Neurotoxicity [Not Recovered/Not Resolved]
  - Diarrhoea [Recovered/Resolved]
  - Asthenia [Recovered/Resolved]
  - Product use in unapproved indication [Unknown]
  - Off label use [Unknown]

NARRATIVE: CASE EVENT DATE: 2010
